FAERS Safety Report 6416209-1 (Version None)
Quarter: 2009Q4

REPORT INFORMATION
  Report Type: 
  Country: None (occurrence: None)
  Receive Date: 20091027
  Receipt Date: 20091016
  Transmission Date: 20100525
  Serious: Yes (Hospitalization)
  Sender: FDA-Public Use
  Company Number: DE-PFIZER INC-2009278197

PATIENT
  Age: 73 Year

DRUGS (1)
  1. CLINDAMYCIN HYDROCHLORIDE [Suspect]
     Indication: TOOTH ABSCESS
     Dosage: 600 MG, 2X/DAY
     Route: 048
     Dates: start: 20090901, end: 20090901

REACTIONS (2)
  - NEUROBORRELIOSIS [None]
  - NEUROPATHY PERIPHERAL [None]
